FAERS Safety Report 9017673 (Version 1)
Quarter: 2013Q1

REPORT INFORMATION
  Report Type: Spontaneous
  Country: US (occurrence: US)
  Receive Date: 20130118
  Receipt Date: 20130118
  Transmission Date: 20140127
  Serious: No
  Sender: FDA-Public Use
  Company Number: US-009507513-1301USA006031

PATIENT
  Sex: Female

DRUGS (3)
  1. SINGULAIR [Suspect]
     Indication: HYPERSENSITIVITY
     Dosage: 10 MG, QD
     Route: 048
     Dates: start: 20100402, end: 20130110
  2. ERGOCALCIFEROL [Concomitant]
  3. PROVENTIL [Concomitant]
     Dosage: INHALER AS NEEDED

REACTIONS (1)
  - Weight increased [Not Recovered/Not Resolved]
